FAERS Safety Report 19177607 (Version 1)
Quarter: 2021Q2

REPORT INFORMATION
  Report Type: Report from Study
  Country: CA (occurrence: CA)
  Receive Date: 20210426
  Receipt Date: 20210426
  Transmission Date: 20210717
  Serious: Yes (Hospitalization)
  Sender: FDA-Public Use
  Company Number: CA-JNJFOC-20210108381

PATIENT
  Age: 71 Year
  Sex: Male
  Weight: 94.43 kg

DRUGS (2)
  1. STELARA [Suspect]
     Active Substance: USTEKINUMAB
     Indication: CROHN^S DISEASE
     Route: 058
     Dates: start: 20200723, end: 20210106
  2. STELARA [Suspect]
     Active Substance: USTEKINUMAB

REACTIONS (4)
  - Intestinal obstruction [Recovered/Resolved]
  - Diarrhoea [Unknown]
  - Colon cancer [Not Recovered/Not Resolved]
  - Frequent bowel movements [Unknown]

NARRATIVE: CASE EVENT DATE: 202012
